FAERS Safety Report 9782423 (Version 2)
Quarter: 2014Q1

REPORT INFORMATION
  Report Type: Spontaneous
  Country: US (occurrence: US)
  Receive Date: 20131226
  Receipt Date: 20140120
  Transmission Date: 20141002
  Serious: Yes (Other)
  Sender: FDA-Public Use
  Company Number: US-JNJFOC-20131212236

PATIENT
  Age: 57 Year
  Sex: Female
  Weight: 102.97 kg

DRUGS (11)
  1. NUCYNTA ER [Suspect]
     Indication: PAIN
     Dosage: STRENGTH: 200 MG
     Route: 048
     Dates: start: 201312
  2. NUCYNTA ER [Suspect]
     Indication: PAIN
     Dosage: STRENGTH: 150 MG
     Route: 048
     Dates: start: 2012, end: 201312
  3. SYNTHROID [Concomitant]
     Indication: BASEDOW^S DISEASE
     Route: 048
  4. PERCOCET [Concomitant]
     Indication: PAIN
     Route: 065
  5. B12 SHOT [Concomitant]
     Route: 065
  6. ACTOPLUS MET [Concomitant]
     Route: 065
  7. LEVEMIR [Concomitant]
     Dosage: NIGHTLY
     Route: 065
  8. KLONOPIN [Concomitant]
     Indication: RAPID EYE MOVEMENTS SLEEP ABNORMAL
     Dosage: 2 AT NIGHT, 0.5 MG
     Route: 048
     Dates: start: 2008
  9. KLONOPIN [Concomitant]
     Indication: MUSCLE SPASMS
     Dosage: 2 AT NIGHT, 0.5 MG
     Route: 048
     Dates: start: 2008
  10. PROZAC [Concomitant]
     Indication: DEPRESSION
     Route: 048
     Dates: start: 201305
  11. CLARITIN D [Concomitant]
     Indication: HYPERSENSITIVITY
     Route: 065

REACTIONS (3)
  - Spinal rod insertion [Unknown]
  - Drug ineffective [Not Recovered/Not Resolved]
  - Drug dose omission [Not Recovered/Not Resolved]
